FAERS Safety Report 15309477 (Version 1)
Quarter: 2018Q3

REPORT INFORMATION
  Report Type: Spontaneous
  Country: US (occurrence: US)
  Receive Date: 20180823
  Receipt Date: 20180823
  Transmission Date: 20181010
  Serious: No
  Sender: FDA-Public Use
  Company Number: US-TEVA-2018-US-945906

PATIENT
  Age: 47 Year
  Sex: Female

DRUGS (1)
  1. TRI?SPRINTEC [Suspect]
     Active Substance: ETHINYL ESTRADIOL\NORGESTIMATE
     Dosage: DOSE STRENGTH: 0.180 MG/ 0.035 MG; 0.215 MG / 0.035 MG; 0.250 MG / 0.035MG
     Route: 065

REACTIONS (2)
  - Product quality issue [Unknown]
  - Nausea [Unknown]
